FAERS Safety Report 6900740-6 (Version None)
Quarter: 2010Q3

REPORT INFORMATION
  Report Type: 
  Country: None (occurrence: None)
  Receive Date: 20100803
  Receipt Date: 20100802
  Transmission Date: 20110219
  Serious: Yes (Other)
  Sender: FDA-Public Use
  Company Number: US-JNJFOC-20100401484

PATIENT
  Sex: Male

DRUGS (2)
  1. LEVAQUIN [Suspect]
     Indication: DIVERTICULITIS
     Route: 048
  2. LEVAQUIN [Suspect]
     Route: 042

REACTIONS (7)
  - ASTHMA [None]
  - INTERVERTEBRAL DISC PROTRUSION [None]
  - LIGAMENT RUPTURE [None]
  - RASH [None]
  - TENDON RUPTURE [None]
  - TENDONITIS [None]
  - URTICARIA [None]
